FAERS Safety Report 7572488 (Version 4)
Quarter: 2014Q2

REPORT INFORMATION
  Report Type: Spontaneous
  Country: US (occurrence: US)
  Receive Date: 20100903
  Receipt Date: 20140404
  Transmission Date: 20141212
  Serious: Yes (Other)
  Sender: FDA-Public Use
  Company Number: US-JNJFOC-20100809047

PATIENT
  Age: 57 Year
  Sex: Female
  Weight: 59.74 kg

DRUGS (13)
  1. REMICADE [Suspect]
     Indication: RHEUMATOID ARTHRITIS
     Route: 042
     Dates: start: 20100826
  2. REMICADE [Suspect]
     Indication: RHEUMATOID ARTHRITIS
     Route: 042
     Dates: start: 200701
  3. DEPO-MEDROL [Concomitant]
  4. ZYRTEC D [Concomitant]
  5. FLONASE [Concomitant]
  6. CLARINEX [Concomitant]
  7. CELEBREX [Concomitant]
  8. CYMBALTA [Concomitant]
  9. ADVAIR [Concomitant]
  10. ULTRAM [Concomitant]
  11. METHOTREXATE [Concomitant]
  12. PREVACID [Concomitant]
  13. IMURAN [Concomitant]

REACTIONS (4)
  - Pain in jaw [Recovered/Resolved]
  - Chest pain [Recovered/Resolved]
  - Infusion related reaction [Recovered/Resolved]
  - Abdominal discomfort [Recovered/Resolved]
